FAERS Safety Report 7008899-X (Version None)
Quarter: 2010Q3

REPORT INFORMATION
  Report Type: 
  Country: None (occurrence: None)
  Receive Date: 20100923
  Receipt Date: 20100914
  Transmission Date: 20110219
  Serious: Yes (Hospitalization)
  Sender: FDA-Public Use
  Company Number: US-BIOGENIDEC-2010BI030201

PATIENT
  Age: 60 Year
  Sex: Female
  Weight: 81 kg

DRUGS (8)
  1. TYSABRI [Suspect]
     Indication: MULTIPLE SCLEROSIS
     Route: 042
     Dates: start: 20090507
  2. BACLOFEN [Concomitant]
     Route: 048
     Dates: start: 20090224, end: 20100803
  3. BACLOFEN [Concomitant]
     Route: 048
     Dates: start: 20100804
  4. ARIPIPRAZOLE [Concomitant]
     Indication: DEPRESSION
     Route: 048
     Dates: start: 20090301
  5. AMLODIPINE [Concomitant]
     Indication: HYPERTENSION
     Route: 048
  6. DALFAMPRIDINE [Concomitant]
     Indication: MULTIPLE SCLEROSIS
     Route: 048
     Dates: start: 20100601
  7. CLONAZEPAM [Concomitant]
     Indication: ANXIETY
     Route: 048
  8. VENLAFAXINE [Concomitant]
     Indication: DEPRESSION
     Route: 048

REACTIONS (1)
  - MULTIPLE SCLEROSIS RELAPSE [None]
